FAERS Safety Report 18493077 (Version 2)
Quarter: 2020Q4

REPORT INFORMATION
  Report Type: Spontaneous
  Country: GR (occurrence: GR)
  Receive Date: 20201112
  Receipt Date: 20201224
  Transmission Date: 20210114
  Serious: Yes (Other)
  Sender: FDA-Public Use
  Company Number: GR-AMGEN-GRCSP2020179596

PATIENT
  Age: 78 Year
  Sex: Male

DRUGS (13)
  1. LEUCOVORIN [FOLINIC ACID] [Concomitant]
     Active Substance: LEUCOVORIN
     Indication: ADENOCARCINOMA OF COLON
     Dosage: UNK
  2. ROSUVASTATIN. [Concomitant]
     Active Substance: ROSUVASTATIN
     Dosage: 40 MILLIGRAM
  3. CHOLIB [Concomitant]
     Active Substance: FENOFIBRATE\SIMVASTATIN
     Dosage: UNK
  4. OXALIPLATIN. [Concomitant]
     Active Substance: OXALIPLATIN
     Indication: ADENOCARCINOMA OF COLON
     Dosage: UNK
  5. DUOPLAVIN [Concomitant]
     Active Substance: ASPIRIN\CLOPIDOGREL
     Dosage: UNK
  6. SALOSPIR [Concomitant]
     Active Substance: ASPIRIN
     Dosage: 100 MILLIGRAM
  7. EZETIMIBE. [Concomitant]
     Active Substance: EZETIMIBE
     Dosage: 10 UNK
  8. VECTIBIX [Suspect]
     Active Substance: PANITUMUMAB
     Indication: ADENOCARCINOMA OF COLON
     Dosage: UNK
     Route: 065
     Dates: start: 2019
  9. 5-FU [FLUOROURACIL] [Concomitant]
     Active Substance: FLUOROURACIL
     Indication: ADENOCARCINOMA OF COLON
     Dosage: UNK
  10. COPALIA [Concomitant]
     Active Substance: AMLODIPINE BESYLATE\VALSARTAN
     Dosage: UNK
  11. CARVEPEN [Concomitant]
     Active Substance: CARVEDILOL
     Dosage: UNK
  12. ATORSTAT [Concomitant]
     Active Substance: ATORVASTATIN CALCIUM
     Dosage: 10 MILLIGRAM
  13. PREVELODA [Concomitant]
     Dosage: UNK

REACTIONS (5)
  - Blood triglycerides increased [Unknown]
  - Drug ineffective [Unknown]
  - Low density lipoprotein increased [Unknown]
  - Discomfort [Unknown]
  - Bundle branch block left [Unknown]

NARRATIVE: CASE EVENT DATE: 2019
